FAERS Safety Report 10145976 (Version 1)
Quarter: 2014Q2

REPORT INFORMATION
  Report Type: Spontaneous
  Country: US (occurrence: None)
  Receive Date: 20140430
  Receipt Date: 20140430
  Transmission Date: 20141212
  Serious: Yes (Death, Life-Threatening, Hospitalization)
  Sender: FDA-Public Use
  Company Number: None

PATIENT
  Age: 18 Year
  Sex: Female
  Weight: 81.9 kg

DRUGS (4)
  1. METHOTREXATE [Suspect]
     Indication: ACUTE LYMPHOCYTIC LEUKAEMIA
     Route: 042
     Dates: start: 20131012
  2. OMEPRAZOLE [Concomitant]
  3. MERCAPTOPURINE [Concomitant]
  4. VINCRISTINE [Concomitant]

REACTIONS (7)
  - Hypotension [None]
  - Haemodialysis [None]
  - Hepatic encephalopathy [None]
  - Disseminated intravascular coagulation [None]
  - Atrioventricular block first degree [None]
  - Atrioventricular block complete [None]
  - Cardiac arrest [None]
